FAERS Safety Report 6526157-4 (Version None)
Quarter: 2009Q4

REPORT INFORMATION
  Report Type: 
  Country: None (occurrence: None)
  Receive Date: 20091228
  Receipt Date: 20091215
  Transmission Date: 20100525
  Serious: Yes (Hospitalization)
  Sender: FDA-Public Use
  Company Number: 234673J09USA

PATIENT
  Age: 49 Year
  Sex: Male
  Weight: 61.6892 kg

DRUGS (5)
  1. REBIF [Suspect]
     Indication: MULTIPLE SCLEROSIS
     Dosage: 44 MCG, 3 IN 1 WEEKS, SUBCUTANEOUS
     Route: 058
     Dates: start: 20021004
  2. BACLOFEN [Concomitant]
  3. LEVOTHYROXINE (LEVVOTHYROXINE /00068001/) [Concomitant]
  4. CYMBALTA [Concomitant]
  5. TOPROL-XL [Concomitant]

REACTIONS (1)
  - CELLULITIS [None]
